FAERS Safety Report 7960893-8 (Version None)
Quarter: 2011Q4

REPORT INFORMATION
  Report Type: 
  Country: None (occurrence: None)
  Receive Date: 20111201
  Receipt Date: 20111118
  Transmission Date: 20120403
  Serious: Yes (Hospitalization)
  Sender: FDA-Public Use
  Company Number: AUR-APL-2011-05916

PATIENT
  Age: 5 Year
  Sex: Male

DRUGS (14)
  1. ZIPRASIDONE HCL [Suspect]
     Indication: PRODUCT USED FOR UNKNOWN INDICATION
     Dosage: (40 MG)
  2. AMPHETAMINE SULFATE [Suspect]
     Indication: PRODUCT USED FOR UNKNOWN INDICATION
  3. ATOMOXETINE HCL [Suspect]
     Indication: PRODUCT USED FOR UNKNOWN INDICATION
     Dosage: (18 MG, IN THE MORNING)
  4. ARIPIPRAZOLE [Suspect]
     Indication: PRODUCT USED FOR UNKNOWN INDICATION
  5. DEXTROAMPETAMINE SULFATE TAB [Suspect]
     Indication: PRODUCT USED FOR UNKNOWN INDICATION
     Dosage: 7.5 MG (2.5 MG, 3 IN 1 D)
  6. ILOPERIDONE (ILOPERIDONE) [Suspect]
     Indication: PRODUCT USED FOR UNKNOWN INDICATION
     Dosage: (6 MG)
  7. DIVALPROEX SODIUM [Suspect]
     Indication: PRODUCT USED FOR UNKNOWN INDICATION
     Dosage: 125 MG (125 MG, 1 IN 1 D) 250 MG (125 MG, 2 IN 1 D)
  8. CHLORPROMAZINE [Suspect]
     Indication: ABNORMAL BEHAVIOUR
     Dosage: 200 MG (200 MG, 1 IN 1 D)
  9. LISDEXAMFETAMINE DIMESYLATE [Suspect]
     Indication: PRODUCT USED FOR UNKNOWN INDICATION
     Dosage: (30 MG)
  10. METHYLPHENIDATE HCL [Suspect]
     Indication: PRODUCT USED FOR UNKNOWN INDICATION
  11. QUETIAPINE FUMARATE [Suspect]
     Indication: PRODUCT USED FOR UNKNOWN INDICATION
     Dosage: 25 MG (12.5 MG, 2 IN 1 D)
  12. LITHIUM CARBONATE [Suspect]
     Indication: PRODUCT USED FOR UNKNOWN INDICATION
     Dosage: 300 MG (150 MG, 2 IN 1 D)
  13. CLONIDINE [Suspect]
     Indication: PRODUCT USED FOR UNKNOWN INDICATION
     Dosage: 0.1 UNKNOWN (0.05 UNKNOWN, 2 IN 1 D) 0.15 MG (0.05 MG, 3 IN 1 D)
  14. CARBAMAZEPINE [Suspect]
     Indication: PRODUCT USED FOR UNKNOWN INDICATION

REACTIONS (23)
  - SYDENHAM'S CHOREA [None]
  - ANXIETY [None]
  - CRYING [None]
  - PSYCHOMOTOR HYPERACTIVITY [None]
  - DECREASED EYE CONTACT [None]
  - AGGRESSION [None]
  - SUICIDAL IDEATION [None]
  - OPPOSITIONAL DEFIANT DISORDER [None]
  - IRRITABILITY [None]
  - BRUXISM [None]
  - SLEEP DISORDER [None]
  - MOOD ALTERED [None]
  - COORDINATION ABNORMAL [None]
  - STREPTOCOCCAL INFECTION [None]
  - HOMICIDAL IDEATION [None]
  - FATIGUE [None]
  - INSOMNIA [None]
  - DRUG INEFFECTIVE [None]
  - DEPRESSED MOOD [None]
  - TRISMUS [None]
  - POOR QUALITY SLEEP [None]
  - DYSKINESIA [None]
  - SPEECH DISORDER [None]
